FAERS Safety Report 5750922-4 (Version None)
Quarter: 2008Q2

REPORT INFORMATION
  Report Type: 
  Country: None (occurrence: None)
  Receive Date: 20080528
  Receipt Date: 20080520
  Transmission Date: 20081010
  Serious: Yes (Death, Hospitalization)
  Sender: FDA-Public Use
  Company Number: DE-MERCK-0712USA07342

PATIENT
  Age: 70 Year
  Sex: Female

DRUGS (3)
  1. PRINIVIL [Suspect]
     Route: 048
  2. LYSODREN [Suspect]
     Indication: ADRENOCORTICAL CARCINOMA
     Route: 065
     Dates: start: 20061122, end: 20071022
  3. FURO [Concomitant]
     Route: 065

REACTIONS (5)
  - DRUG LEVEL ABOVE THERAPEUTIC [None]
  - HYPOKALAEMIA [None]
  - NEOPLASM PROGRESSION [None]
  - PSYCHOMOTOR HYPERACTIVITY [None]
  - SLEEP DISORDER [None]
